FAERS Safety Report 4977328-X (Version None)
Quarter: 2006Q2

REPORT INFORMATION
  Report Type: 
  Country: None (occurrence: None)
  Receive Date: 20060419
  Receipt Date: 20060216
  Transmission Date: 20061013
  Serious: Yes (Death, Hospitalization, Other)
  Sender: FDA-Public Use
  Company Number: US-MERCK-0602USA04634

PATIENT
  Age: 58 Year
  Sex: Female

DRUGS (6)
  1. VIOXX [Suspect]
     Indication: OSTEOARTHRITIS
     Route: 048
     Dates: start: 20000911, end: 20011101
  2. AMITRIPTYLINE HYDROCHLORIDE [Concomitant]
     Route: 065
  3. PROZAC [Concomitant]
     Route: 065
  4. INDERAL [Concomitant]
     Route: 065
  5. SOMA [Concomitant]
     Route: 065
  6. VITAMIN E [Concomitant]
     Route: 065

REACTIONS (38)
  - ABDOMINAL PAIN LOWER [None]
  - ACUTE PULMONARY OEDEMA [None]
  - ANXIETY [None]
  - APHASIA [None]
  - ARTERIOSCLEROSIS [None]
  - AZOTAEMIA [None]
  - BALANCE DISORDER [None]
  - CARDIAC FAILURE CONGESTIVE [None]
  - CONSTIPATION [None]
  - COORDINATION ABNORMAL [None]
  - DEATH [None]
  - DIVERTICULUM [None]
  - HAEMATOCHEZIA [None]
  - HYPERLIPIDAEMIA [None]
  - HYPOKINESIA [None]
  - HYPOXIA [None]
  - INSOMNIA [None]
  - ISCHAEMIC CARDIOMYOPATHY [None]
  - LERICHE SYNDROME [None]
  - MITRAL VALVE INCOMPETENCE [None]
  - MUSCLE SPASMS [None]
  - MYOCARDIAL INFARCTION [None]
  - NAIL HYPERTROPHY [None]
  - OBSTRUCTIVE AIRWAYS DISORDER [None]
  - OEDEMA MUCOSAL [None]
  - OSTEOPOROSIS [None]
  - PAIN IN EXTREMITY [None]
  - PAIN IN JAW [None]
  - PANIC ATTACK [None]
  - PARAESTHESIA [None]
  - PERIPHERAL VASCULAR DISORDER [None]
  - RECTAL HAEMORRHAGE [None]
  - RENAL FAILURE [None]
  - RESTRICTIVE PULMONARY DISEASE [None]
  - TRANSIENT ISCHAEMIC ATTACK [None]
  - TREMOR [None]
  - URETERIC OBSTRUCTION [None]
  - VENTRICULAR HYPERTROPHY [None]
